FAERS Safety Report 6092776-5 (Version None)
Quarter: 2009Q1

REPORT INFORMATION
  Report Type: 
  Country: None (occurrence: None)
  Receive Date: 20090225
  Receipt Date: 20090217
  Transmission Date: 20090719
  Serious: Yes (Other)
  Sender: FDA-Public Use
  Company Number: CA-ALLERGAN-0807102US

PATIENT
  Sex: Female
  Weight: 61.224 kg

DRUGS (9)
  1. BOTOX COSMETIC [Suspect]
     Indication: SKIN WRINKLING
     Dosage: 18 UNITS, SINGLE
     Route: 030
     Dates: start: 20020711, end: 20020711
  2. PREMARIN [Concomitant]
     Dosage: 0.625 MG, QD
     Route: 048
  3. VIOXX [Concomitant]
     Dosage: 25 MG, QD
     Route: 048
  4. LOSEC [Concomitant]
     Dosage: 20 MG, QD
     Route: 048
  5. VITAMIN E [Concomitant]
     Dosage: 400 IU, UNK
  6. CHONDROITIN [Concomitant]
     Dosage: 500 MG, UNK
  7. CALCIUM, COMBINATIONS WITH OTHER DRUGS [Concomitant]
     Dosage: 1 DF, QD
  8. GLUCOSAMINE [Concomitant]
     Dosage: 1000 MG, UNK
  9. ASCORBIC ACID [Concomitant]
     Dosage: 500 MG, QD

REACTIONS (1)
  - MUSCLE SPASMS [None]
